FAERS Safety Report 9257575 (Version 1)
Quarter: 2013Q2

REPORT INFORMATION
  Report Type: Spontaneous
  Country: US (occurrence: US)
  Receive Date: 20130426
  Receipt Date: 20130426
  Transmission Date: 20140414
  Serious: Yes (Other)
  Sender: FDA-Public Use
  Company Number: US-PFIZER INC-2013126973

PATIENT
  Age: 54 Year
  Sex: Female
  Weight: 88.44 kg

DRUGS (1)
  1. LEVOXYL [Suspect]
     Indication: THYROID DISORDER
     Dosage: 125 UG, 1X/DAY
     Route: 048
     Dates: start: 1995

REACTIONS (1)
  - Coeliac disease [Unknown]
